APPROVED DRUG PRODUCT: EVOTAZ
Active Ingredient: ATAZANAVIR SULFATE; COBICISTAT
Strength: EQ 300MG BASE;150MG
Dosage Form/Route: TABLET;ORAL
Application: N206353 | Product #001
Applicant: BRISTOL MYERS SQUIBB CO
Approved: Jan 29, 2015 | RLD: Yes | RS: Yes | Type: RX

PATENTS:
Patent 8148374 | Expires: Sep 3, 2029
Patent 10039718 | Expires: Oct 6, 2032